FAERS Safety Report 21474595 (Version 1)
Quarter: 2022Q4

REPORT INFORMATION
  Report Type: Spontaneous
  Country: JP (occurrence: JP)
  Receive Date: 20221018
  Receipt Date: 20221018
  Transmission Date: 20230113
  Serious: Yes (Other)
  Sender: FDA-Public Use
  Company Number: JP-NOVARTISPH-NVSJ2022JP099200

PATIENT
  Sex: Male

DRUGS (2)
  1. INDACATEROL [Suspect]
     Active Substance: INDACATEROL
     Indication: Chronic obstructive pulmonary disease
     Dosage: UNK
  2. INDACATEROL [Suspect]
     Active Substance: INDACATEROL
     Dosage: UNK

REACTIONS (3)
  - Urinary retention [Unknown]
  - Benign prostatic hyperplasia [Unknown]
  - Nocturia [Unknown]
